FAERS Safety Report 20987804 (Version 1)
Quarter: 2022Q2

REPORT INFORMATION
  Report Type: Spontaneous
  Country: US (occurrence: None)
  Receive Date: 20220620
  Receipt Date: 20220620
  Transmission Date: 20220720
  Serious: Yes (Other)
  Sender: FDA-Public Use
  Company Number: None

PATIENT
  Age: 34 Year
  Sex: Female

DRUGS (1)
  1. MAVYRET [Suspect]
     Active Substance: GLECAPREVIR\PIBRENTASVIR
     Dates: start: 20220427, end: 20220531

REACTIONS (4)
  - Pregnancy [None]
  - Maternal exposure during pregnancy [None]
  - Abortion spontaneous [None]
  - Therapy interrupted [None]

NARRATIVE: CASE EVENT DATE: 20220615
